FAERS Safety Report 9479797 (Version 1)
Quarter: 2013Q3

REPORT INFORMATION
  Report Type: Spontaneous
  Country: CA (occurrence: CA)
  Receive Date: 20130828
  Receipt Date: 20130828
  Transmission Date: 20140515
  Serious: Yes (Death, Hospitalization)
  Sender: FDA-Public Use
  Company Number: CA-AMGEN-CANSP2012044990

PATIENT
  Age: 60 Year
  Sex: Male

DRUGS (3)
  1. ENBREL [Suspect]
     Indication: RHEUMATOID ARTHRITIS
     Dosage: 50 MG, QWK
     Route: 065
     Dates: start: 20091002, end: 20120518
  2. DILAUDID [Concomitant]
     Dosage: UNK
  3. MORPHINE [Concomitant]
     Dosage: UNK

REACTIONS (4)
  - Gastric ulcer perforation [Fatal]
  - Refusal of treatment by patient [Fatal]
  - Asthenia [Unknown]
  - Decreased appetite [Unknown]
